FAERS Safety Report 15339629 (Version 1)
Quarter: 2018Q3

REPORT INFORMATION
  Report Type: Spontaneous
  Country: US (occurrence: US)
  Receive Date: 20180831
  Receipt Date: 20180831
  Transmission Date: 20181010
  Serious: Yes (Other)
  Sender: FDA-Public Use
  Company Number: US-PFIZER INC-2018341997

PATIENT
  Sex: Male

DRUGS (1)
  1. NARDIL [Suspect]
     Active Substance: PHENELZINE SULFATE
     Dosage: UNK
     Dates: start: 1980

REACTIONS (4)
  - Escherichia infection [Unknown]
  - Bladder diverticulum [Unknown]
  - Bladder spasm [Unknown]
  - Prostatomegaly [Unknown]
